FAERS Safety Report 10195995 (Version 1)
Quarter: 2014Q2

REPORT INFORMATION
  Report Type: Spontaneous
  Country: CH (occurrence: CH)
  Receive Date: 20140527
  Receipt Date: 20140527
  Transmission Date: 20141212
  Serious: Yes (Death)
  Sender: FDA-Public Use
  Company Number: PHHY2014CH062188

PATIENT
  Age: 84 Year
  Sex: 0

DRUGS (2)
  1. OCTREOTIDE [Suspect]
     Indication: PAROTITIS
  2. GLYCOPYRRONIUM BROMIDE [Suspect]
     Indication: PAROTITIS

REACTIONS (2)
  - Death [Fatal]
  - Dry mouth [Unknown]
